FAERS Safety Report 21853123 (Version 1)
Quarter: 2023Q1

REPORT INFORMATION
  Report Type: Spontaneous
  Country: US (occurrence: US)
  Receive Date: 20230112
  Receipt Date: 20230112
  Transmission Date: 20230418
  Serious: Yes (Death, Other)
  Sender: FDA-Public Use
  Company Number: US-APOTEX-2023AP000117

PATIENT
  Sex: Male

DRUGS (13)
  1. SIROLIMUS [Suspect]
     Active Substance: SIROLIMUS
     Indication: Venolymphatic malformation
     Dosage: 0.8 MILLIGRAM/SQ. METER, QD (AT DAY 8 OF AGE-0.14 MG ORAL SOLUTION))
     Route: 048
     Dates: start: 2021
  2. SIROLIMUS [Suspect]
     Active Substance: SIROLIMUS
     Dosage: 0.8 MILLIGRAM/SQ. METER, QD (AT 2 MONTHS OF AGE-0.18 MG ORAL SOLUTION))
     Route: 048
  3. SIROLIMUS [Suspect]
     Active Substance: SIROLIMUS
     Dosage: 0.8 MILLIGRAM/SQ. METER, QD (AT DAY 75 OF AGE-0.22 MG ORAL SOLUTION))
     Route: 048
  4. SIROLIMUS [Suspect]
     Active Substance: SIROLIMUS
     Dosage: 0.8 MILLIGRAM/SQ. METER, QD (AT DAY 83 OF AGE-0.3 MG ORAL SOLUTION))
     Route: 048
  5. SIROLIMUS [Suspect]
     Active Substance: SIROLIMUS
     Dosage: 0.8 MILLIGRAM/SQ. METER, QD (AT DAY 118 OF AGE-0.4 MG ORAL SOLUTION))
     Route: 048
  6. DOXYCYCLINE [Concomitant]
     Active Substance: DOXYCYCLINE
     Indication: Sclerotherapy
     Dosage: 150 MILLIGRAM (AT DAY 6 OF AGE)
     Route: 065
     Dates: start: 2021
  7. DOXYCYCLINE [Concomitant]
     Active Substance: DOXYCYCLINE
     Dosage: 150 MILLIGRAM (DAY 15-29: 4X)
     Route: 065
     Dates: start: 2021
  8. DOXYCYCLINE [Concomitant]
     Active Substance: DOXYCYCLINE
     Dosage: 300 MILLIGRAM (DAY 33)
     Route: 065
     Dates: start: 2021
  9. DOXYCYCLINE [Concomitant]
     Active Substance: DOXYCYCLINE
     Dosage: 300 MILLIGRAM (1 MONTHS)
     Route: 065
     Dates: start: 2021
  10. DOXYCYCLINE [Concomitant]
     Active Substance: DOXYCYCLINE
     Dosage: 300 MILLIGRAM (1.5 MONTHS: 3X)
     Route: 065
     Dates: start: 2021
  11. DOXYCYCLINE [Concomitant]
     Active Substance: DOXYCYCLINE
     Dosage: 300 MILLIGRAM (2-3 MONTHS: 10X)
     Route: 065
     Dates: start: 2021
  12. DOXYCYCLINE [Concomitant]
     Active Substance: DOXYCYCLINE
     Dosage: 300 MILLIGRAM (3-4 MONTHS: 7X)
     Route: 065
     Dates: start: 2021
  13. DOXYCYCLINE [Concomitant]
     Active Substance: DOXYCYCLINE
     Dosage: 150 MILLIGRAM (4 MONTHS 17 DAYS)
     Route: 065
     Dates: start: 2021

REACTIONS (2)
  - Pulmonary haemorrhage [Fatal]
  - Diffuse alveolar damage [Fatal]
